FAERS Safety Report 20121309 (Version 1)
Quarter: 2021Q4

REPORT INFORMATION
  Report Type: Spontaneous
  Country: US (occurrence: None)
  Receive Date: 20211124
  Receipt Date: 20211124
  Transmission Date: 20220303
  Serious: No
  Sender: FDA-Public Use
  Company Number: None

PATIENT
  Sex: Male

DRUGS (1)
  1. VUMERITY [Suspect]
     Active Substance: DIROXIMEL FUMARATE
     Indication: Multiple sclerosis
     Dosage: FREQUENCY : TWICE A DAY;?
     Route: 048
     Dates: start: 202105

REACTIONS (6)
  - Multiple sclerosis relapse [None]
  - Multiple sclerosis relapse [None]
  - Multiple sclerosis [None]
  - Depression [None]
  - Therapy interrupted [None]
  - Product dose omission in error [None]
